FAERS Safety Report 7110758-9 (Version None)
Quarter: 2010Q4

REPORT INFORMATION
  Report Type: 
  Country: None (occurrence: None)
  Receive Date: 20101118
  Receipt Date: 20101110
  Transmission Date: 20110411
  Serious: Yes (Death)
  Sender: FDA-Public Use
  Company Number: B0684063A

PATIENT
  Sex: Male

DRUGS (5)
  1. PAXIL [Suspect]
     Indication: DEPRESSION
     Dosage: 10MG PER DAY
     Route: 048
     Dates: start: 20101028, end: 20101103
  2. UNKNOWN DRUG [Concomitant]
     Indication: DEPRESSION
     Route: 065
  3. GASMOTIN [Concomitant]
     Indication: NAUSEA
     Dosage: 45MG PER DAY
     Route: 048
     Dates: start: 20101028, end: 20101103
  4. MYSLEE [Concomitant]
     Indication: INSOMNIA
     Dosage: 10MG PER DAY
     Route: 048
     Dates: start: 20101028, end: 20101103
  5. LENDORMIN [Concomitant]
     Indication: INSOMNIA
     Route: 048
     Dates: start: 20101001, end: 20101013

REACTIONS (5)
  - COMPLETED SUICIDE [None]
  - DYSPEPSIA [None]
  - FEELING HOT [None]
  - RESTLESSNESS [None]
  - SUICIDAL IDEATION [None]
